FAERS Safety Report 10412383 (Version 1)
Quarter: 2014Q3

REPORT INFORMATION
  Report Type: Spontaneous
  Country: US (occurrence: US)
  Receive Date: 20140827
  Receipt Date: 20140827
  Transmission Date: 20150326
  Serious: Yes (Death, Hospitalization)
  Sender: FDA-Public Use
  Company Number: US-PFIZER INC-2014235661

PATIENT
  Age: 41 Year
  Sex: Female

DRUGS (1)
  1. VERAPAMIL HCL [Suspect]
     Active Substance: VERAPAMIL HYDROCHLORIDE
     Indication: HEADACHE
     Dosage: 30 VERAPAMIL ER 120 MG IN A 5-HOUR, IMPRESSION OF AS NEEDED

REACTIONS (4)
  - Accidental overdose [Fatal]
  - Bradycardia [Fatal]
  - Hypotension [Fatal]
  - Off label use [Unknown]
